FAERS Safety Report 6852309-X (Version None)
Quarter: 2010Q3

REPORT INFORMATION
  Report Type: 
  Country: None (occurrence: None)
  Receive Date: 20100717
  Receipt Date: 20071107
  Transmission Date: 20110219
  Serious: No
  Sender: FDA-Public Use
  Company Number: US-PFIZER INC-2007096359

PATIENT
  Sex: Female
  Weight: 94.545 kg

DRUGS (10)
  1. CHANTIX [Suspect]
     Indication: SMOKING CESSATION THERAPY
     Dates: start: 20070101, end: 20070101
  2. VYTORIN [Concomitant]
  3. ATENOLOL AND CHLORTHALIDONE [Concomitant]
  4. KLOR-CON [Concomitant]
  5. NAPROXEN [Concomitant]
  6. FOLIC ACID [Concomitant]
  7. METHOTREXATE [Concomitant]
  8. HUMIRA [Concomitant]
  9. ONE-A-DAY [Concomitant]
  10. HYDROCORTISONE [Concomitant]

REACTIONS (2)
  - FEELING ABNORMAL [None]
  - NAUSEA [None]
